FAERS Safety Report 5080674-5 (Version None)
Quarter: 2006Q3

REPORT INFORMATION
  Report Type: 
  Country: None (occurrence: None)
  Receive Date: 20060809
  Receipt Date: 20060731
  Transmission Date: 20061208
  Serious: Yes (Other)
  Sender: FDA-Public Use
  Company Number: 2005-09-0876

PATIENT
  Age: 48 Year
  Sex: Female
  Weight: 59 kg

DRUGS (2)
  1. PEG-INTRON [Suspect]
     Indication: HEPATITIS C
     Dosage: 80MCG-UNK* SUBCUTANEOUS
     Route: 058
     Dates: start: 20050418, end: 20050901
  2. REBETOL [Suspect]
     Indication: HEPATITIS C
     Dosage: 600MG-UNK* ORAL
     Route: 048
     Dates: start: 20050418, end: 20050901

REACTIONS (1)
  - NO ADVERSE DRUG EFFECT [None]
